FAERS Safety Report 7906669-9 (Version None)
Quarter: 2011Q4

REPORT INFORMATION
  Report Type: 
  Country: None (occurrence: None)
  Receive Date: 20111109
  Receipt Date: 20111109
  Transmission Date: 20120403
  Serious: Yes (Other)
  Sender: FDA-Public Use
  Company Number: None

PATIENT
  Age: 73 Year
  Sex: Female
  Weight: 102.5129 kg

DRUGS (4)
  1. CLOZARIL [Concomitant]
  2. ABILIFY [Concomitant]
  3. RISPERIDONE [Suspect]
     Indication: DEPRESSED MOOD
     Dosage: 1 MG TAB 1 AT BEDTIME BY MOUTH
     Route: 048
     Dates: start: 20110915, end: 20110919
  4. ZYPREXA [Concomitant]

REACTIONS (22)
  - RASH [None]
  - DYSSTASIA [None]
  - CONFUSIONAL STATE [None]
  - SWOLLEN TONGUE [None]
  - FATIGUE [None]
  - SALIVARY HYPERSECRETION [None]
  - URINARY INCONTINENCE [None]
  - POLLAKIURIA [None]
  - SPEECH DISORDER [None]
  - MUSCLE DISORDER [None]
  - THINKING ABNORMAL [None]
  - VISION BLURRED [None]
  - ARTHRALGIA [None]
  - DROOLING [None]
  - GAIT DISTURBANCE [None]
  - HEADACHE [None]
  - SOMNOLENCE [None]
  - MUSCLE RIGIDITY [None]
  - ANXIETY [None]
  - CONSTIPATION [None]
  - ASTHENIA [None]
  - RHINORRHOEA [None]
